FAERS Safety Report 26207542 (Version 1)
Quarter: 2025Q4

REPORT INFORMATION
  Report Type: Spontaneous
  Country: EU (occurrence: EU)
  Receive Date: 20251229
  Receipt Date: 20251229
  Transmission Date: 20260119
  Serious: Yes (Hospitalization)
  Sender: TEVA
  Company Number: None

PATIENT
  Age: 75 Year
  Sex: Male

DRUGS (11)
  1. PEMETREXED [Suspect]
     Active Substance: PEMETREXED
     Indication: Product used for unknown indication
     Route: 051
     Dates: start: 20250530, end: 20251024
  2. NALDEMEDINE [Concomitant]
     Active Substance: NALDEMEDINE
     Indication: Product used for unknown indication
     Dosage: 200 MICROG CPS: 1 CP AT 8
     Route: 065
  3. BISOPROLOL FUMARATE [Concomitant]
     Active Substance: BISOPROLOL FUMARATE
     Indication: Product used for unknown indication
     Dosage: 1.25 MG CPS: 1 CPR 2 TIMES A DAY (8AM-8PM)
     Route: 048
  4. PREGABALIN [Concomitant]
     Active Substance: PREGABALIN
     Indication: Product used for unknown indication
     Dosage: 25 MG CPS: 1 CP AT 8 AM, 2 CP AT 8 PM
     Route: 048
  5. LANSOPRAZOLE [Concomitant]
     Active Substance: LANSOPRAZOLE
     Indication: Product used for unknown indication
     Dosage: 30 MG: 1 CAPSULE PER DAY ON AN EMPTY STOMACH, 30 MINUTES BEFORE BREAKFAST OR TAKING OTHER MEDICAT...
     Route: 048
  6. FENTANYL [Concomitant]
     Active Substance: FENTANYL
     Indication: Product used for unknown indication
     Dosage: 100 MICROG CPS: 1 CP AS NEEDED IF NRS}4
     Route: 048
  7. POLYETHYLENE GLYCOL 3350 [Concomitant]
     Active Substance: POLYETHYLENE GLYCOL 3350
     Indication: Product used for unknown indication
     Dosage: 1-2 SACHETS AT 8AM TO MAINTAIN A DAILY BOWEL MOVEMENT WITH SOFT STOOLS
     Route: 048
  8. FONDAPARINUX [Concomitant]
     Active Substance: FONDAPARINUX
     Indication: Product used for unknown indication
     Dosage: SC: 1 F SC PER DAY (8PM) UNTIL COMPLETE MOBILIZATION
     Route: 058
  9. METHYLPREDNISOLONE [Concomitant]
     Active Substance: METHYLPREDNISOLONE
     Indication: Product used for unknown indication
     Dosage: 4 MG CPS: 1 CP AT 8 AM TO BE REDUCED BY 1/4 EVERY 2 WEEKS
     Route: 048
  10. TAMSULOSIN HYDROCHLORIDE [Concomitant]
     Active Substance: TAMSULOSIN HYDROCHLORIDE
     Indication: Product used for unknown indication
     Dosage: 0.4 MG CPS: 1 CP AT 8PM
     Route: 048
  11. FENTANYL [Concomitant]
     Active Substance: FENTANYL
     Indication: Product used for unknown indication
     Dosage: 25 MICROG/H TRANSDERMAL PATCHES, TO BE APPLIED EVERY 72 HOURS (ALREADY REPLACED THIS MORNING)
     Route: 062

REACTIONS (1)
  - Pancytopenia [Recovered/Resolved]

NARRATIVE: CASE EVENT DATE: 20251105
